FAERS Safety Report 10541930 (Version 1)
Quarter: 2014Q4

REPORT INFORMATION
  Report Type: Spontaneous
  Country: ES (occurrence: ES)
  Receive Date: 20141024
  Receipt Date: 20141024
  Transmission Date: 20150529
  Serious: Yes (Death, Other)
  Sender: FDA-Public Use
  Company Number: ES-MYLANLABS-2014M1008192

PATIENT

DRUGS (8)
  1. FAMCICLOVIR. [Concomitant]
     Active Substance: FAMCICLOVIR
     Indication: ADENOCARCINOMA OF COLON
     Route: 065
  2. NERVINEX [Interacting]
     Active Substance: BRIVUDINE
     Indication: HERPES ZOSTER
     Route: 048
  3. FLUOROURACIL. [Suspect]
     Active Substance: FLUOROURACIL
     Indication: ADENOCARCINOMA OF COLON
     Dosage: 400 MG/M2
     Route: 040
  4. OXALIPLATIN. [Suspect]
     Active Substance: OXALIPLATIN
     Indication: ADENOCARCINOMA OF COLON
     Route: 065
  5. BEVACIZUMAB [Concomitant]
     Active Substance: BEVACIZUMAB
     Indication: ADENOCARCINOMA OF COLON
     Dosage: 85 MG/M2
     Route: 042
  6. FLUOROURACIL. [Interacting]
     Active Substance: FLUOROURACIL
     Dosage: 1200 MG/M2 AS A 48-HOUR CONTINUOUS INFUSION
  7. FOLINIC ACID [Concomitant]
     Active Substance: LEUCOVORIN
     Indication: ADENOCARCINOMA OF COLON
     Dosage: 200MG/M2
     Route: 042
  8. BEVACIZUMAB [Concomitant]
     Active Substance: BEVACIZUMAB
     Dosage: 5 MG/KG
     Route: 042

REACTIONS (12)
  - Thrombocytopenia [Unknown]
  - Faeces discoloured [Unknown]
  - Drug interaction [Fatal]
  - Dysphagia [Unknown]
  - Respiratory failure [Fatal]
  - Leukopenia [Unknown]
  - Neurotoxicity [Unknown]
  - Alopecia [Unknown]
  - Pigmentation disorder [Unknown]
  - Respiratory tract infection [Fatal]
  - Neutropenia [Unknown]
  - Abdominal pain [Unknown]
